FAERS Safety Report 24401555 (Version 1)
Quarter: 2024Q4

REPORT INFORMATION
  Report Type: Spontaneous
  Country: US (occurrence: US)
  Receive Date: 20241007
  Receipt Date: 20241007
  Transmission Date: 20250114
  Serious: No
  Sender: ALK-ABELLO
  Company Number: US-ALK-ABELLO A/S-2024AA003517

PATIENT

DRUGS (16)
  1. CARYA ILLINOINENSIS POLLEN [Suspect]
     Active Substance: CARYA ILLINOINENSIS POLLEN
     Indication: Diagnostic procedure
  2. CETIRIZINE [Concomitant]
     Active Substance: CETIRIZINE HYDROCHLORIDE
     Indication: Product used for unknown indication
     Dosage: 5 MILLILITER (5 MG/5 ML ORAL SOLUTION)
     Route: 048
  3. DIPHENHYDRAMINE [Concomitant]
     Active Substance: DIPHENHYDRAMINE
     Indication: Product used for unknown indication
     Dosage: 12.5 MILLILITER (12.5 MG/5 ML ORAL LIQUID)
     Route: 048
     Dates: start: 20240723
  4. DAE BULK 1263 [Concomitant]
  5. EDIBLE ROCK CRAB [Concomitant]
     Active Substance: EDIBLE ROCK CRAB
  6. LOBSTER, UNSPECIFIED [Concomitant]
     Active Substance: LOBSTER, UNSPECIFIED
  7. DAE BULK 733 [Concomitant]
  8. CRANGON SHRIMP [Concomitant]
     Active Substance: CRANGON SHRIMP
  9. DAE BULK 1334 [Concomitant]
  10. DAE BULK 764 [Concomitant]
  11. DAE BULK 765 [Concomitant]
  12. DAE BULK 763 [Concomitant]
  13. DAE BULK 1256 [Concomitant]
  14. DAE BULK 766 [Concomitant]
  15. PISTACHIO NUT [Concomitant]
     Active Substance: PISTACHIO
  16. ALLERGENIC EXTRACT- PEANUT ARACHIS HYPOGAEA [Concomitant]
     Active Substance: ALLERGENIC EXTRACT- PEANUT ARACHIS HYPOGAEA

REACTIONS (1)
  - False negative investigation result [Unknown]
